FAERS Safety Report 18641053 (Version 1)
Quarter: 2020Q4

REPORT INFORMATION
  Report Type: Spontaneous
  Country: FR (occurrence: FR)
  Receive Date: 20201221
  Receipt Date: 20201221
  Transmission Date: 20210114
  Serious: Yes (Hospitalization)
  Sender: FDA-Public Use
  Company Number: FR-JNJFOC-20201228388

PATIENT
  Age: 91 Year
  Sex: Female
  Weight: 76 kg

DRUGS (7)
  1. AMLOR [Concomitant]
     Active Substance: AMLODIPINE BESYLATE
     Indication: HYPERTENSIVE HEART DISEASE
     Route: 048
  2. TANGANIL [Concomitant]
     Active Substance: ACETYLLEUCINE
     Indication: VERTIGO
     Route: 048
  3. RAMIPRIL. [Concomitant]
     Active Substance: RAMIPRIL
     Indication: HYPERTENSIVE HEART DISEASE
     Route: 048
  4. BISOPROLOL FUMARATE. [Concomitant]
     Active Substance: BISOPROLOL FUMARATE
     Indication: HYPERTENSIVE HEART DISEASE
     Route: 048
  5. XARELTO [Suspect]
     Active Substance: RIVAROXABAN
     Indication: ATRIAL FIBRILLATION
     Route: 048
     Dates: start: 201712, end: 20201121
  6. BETAHISTINE HYDROCHLORIDE [Concomitant]
     Active Substance: BETAHISTINE HYDROCHLORIDE
     Indication: VERTIGO
     Route: 048
  7. SERESTA [Concomitant]
     Active Substance: OXAZEPAM
     Indication: ANXIETY
     Route: 048

REACTIONS (2)
  - Drug ineffective [Recovered/Resolved]
  - Cerebrovascular accident [Recovered/Resolved]

NARRATIVE: CASE EVENT DATE: 20201121
